FAERS Safety Report 26039727 (Version 1)
Quarter: 2025Q4

REPORT INFORMATION
  Report Type: Spontaneous
  Country: US (occurrence: US)
  Receive Date: 20251113
  Receipt Date: 20251113
  Transmission Date: 20260118
  Serious: No
  Sender: NOVARTIS
  Company Number: US-ORG100013279-032383

PATIENT
  Age: 47 Year
  Sex: Male

DRUGS (1)
  1. LAMISIL [Suspect]
     Active Substance: TERBINAFINE HYDROCHLORIDE
     Indication: Tinea pedis
     Dosage: 1 DOSAGE FORM, QD (ROA: TOPICAL, THE DURATION OF THE TREATMENT WITH LAMISIL CREAM WAS UNKNOWN; 1% CR
     Route: 050
     Dates: start: 20241230, end: 20250101

REACTIONS (3)
  - Pruritus [Unknown]
  - Vision blurred [Unknown]
  - Paraesthesia [Unknown]
